FAERS Safety Report 10636607 (Version 1)
Quarter: 2014Q4

REPORT INFORMATION
  Report Type: Spontaneous
  Country: DE (occurrence: DE)
  Receive Date: 20141208
  Receipt Date: 20141208
  Transmission Date: 20150529
  Serious: Yes (Congenital Anomaly)
  Sender: FDA-Public Use
  Company Number: GXKR2014DE004529

PATIENT

DRUGS (3)
  1. CENTRUM MATERNA [Concomitant]
     Indication: PROPHYLAXIS OF NEURAL TUBE DEFECT
     Dosage: MATERNAL DOSE (5. - 37.2 GESTATIONAL WEEK): 0.4 [MG/D ]
     Route: 064
  2. L-THYROXINE//LEVOTHYROXINE [Concomitant]
     Indication: HYPOTHYROIDISM
     Dosage: MATERNAL DOSE (0. - 37.2 GESTATIONAL WEEK): 150 [?G/D ]
     Route: 064
     Dates: start: 20131023, end: 20140711
  3. LAMOTRIGIN 1A PHARMA [Suspect]
     Active Substance: LAMOTRIGINE
     Indication: GENERALISED TONIC-CLONIC SEIZURE
     Dosage: MATERNAL DOSE: 400 [MG/D ]/ FROM 150-0-150 MG/D INCREASED TO 200-0-200 MG/D (IN GW 25)
     Route: 064
     Dates: start: 20131023, end: 20140711

REACTIONS (1)
  - Atrial septal defect [Unknown]

NARRATIVE: CASE EVENT DATE: 20140711
